FAERS Safety Report 10892679 (Version 1)
Quarter: 2015Q1

REPORT INFORMATION
  Report Type: Report from Study
  Country: GB (occurrence: GB)
  Receive Date: 20150306
  Receipt Date: 20150306
  Transmission Date: 20150721
  Serious: Yes (Hospitalization)
  Sender: FDA-Public Use
  Company Number: GB-009507513-1503GBR001091

PATIENT
  Sex: Male
  Weight: 81.9 kg

DRUGS (4)
  1. AZACITIDINE. [Suspect]
     Active Substance: AZACITIDINE
     Indication: ACUTE MYELOID LEUKAEMIA
     Dosage: 155 MG, QD (CURRENTLY CYCLE 12)
     Route: 058
     Dates: start: 20140428, end: 20150217
  2. VORINOSTAT [Suspect]
     Active Substance: VORINOSTAT
     Indication: MYELODYSPLASTIC SYNDROME
  3. VORINOSTAT [Suspect]
     Active Substance: VORINOSTAT
     Indication: ACUTE MYELOID LEUKAEMIA
     Dosage: 300 MG, BID (CURRENTLY CYCLE 12)
     Route: 048
     Dates: start: 20140430, end: 20150217
  4. AZACITIDINE. [Suspect]
     Active Substance: AZACITIDINE
     Indication: MYELODYSPLASTIC SYNDROME

REACTIONS (4)
  - Blood creatinine increased [Recovered/Resolved]
  - Acute kidney injury [Recovered/Resolved]
  - Epistaxis [Recovered/Resolved]
  - Blood urea increased [Recovered/Resolved]

NARRATIVE: CASE EVENT DATE: 201502
